FAERS Safety Report 6511046-1 (Version None)
Quarter: 2009Q4

REPORT INFORMATION
  Report Type: 
  Country: None (occurrence: None)
  Receive Date: 20091222
  Receipt Date: 20090218
  Transmission Date: 20100525
  Serious: No
  Sender: FDA-Public Use
  Company Number: US-ASTRAZENECA-2009UW04634

PATIENT
  Age: 863 Month
  Sex: Female
  Weight: 113.4 kg

DRUGS (9)
  1. CRESTOR [Suspect]
     Indication: BLOOD CHOLESTEROL INCREASED
     Route: 048
     Dates: start: 20081101
  2. CORGARD [Concomitant]
     Indication: CARDIAC DISORDER
  3. TRICOR [Concomitant]
     Indication: BLOOD CHOLESTEROL
  4. PHOSNOPRIL [Concomitant]
     Indication: HYPERTENSION
  5. OMEPRAZOLE [Concomitant]
     Indication: DYSPEPSIA
  6. GLIMEPIRIDE [Concomitant]
     Indication: DIABETES MELLITUS
  7. ASPIRIN [Concomitant]
  8. ACTOS [Concomitant]
     Indication: DIABETES MELLITUS
  9. AVODART [Concomitant]

REACTIONS (1)
  - PAIN IN EXTREMITY [None]
